FAERS Safety Report 9848582 (Version 2)
Quarter: 2014Q1

REPORT INFORMATION
  Report Type: Report from Study
  Country: CA (occurrence: CA)
  Receive Date: 20140128
  Receipt Date: 20140311
  Transmission Date: 20141002
  Serious: Yes (Other)
  Sender: FDA-Public Use
  Company Number: CA-ROCHE-1340175

PATIENT
  Age: 83 Year
  Sex: Male
  Weight: 53.5 kg

DRUGS (12)
  1. RITUXAN [Suspect]
     Indication: RHEUMATOID ARTHRITIS
     Dosage: LAST DOSE WAS ON  17/MAY/2013
     Route: 042
     Dates: start: 20130503
  2. DIPHENHYDRAMINE HCL [Concomitant]
     Indication: PREMEDICATION
     Route: 048
     Dates: start: 20130503
  3. ACETAMINOPHEN [Concomitant]
     Indication: PREMEDICATION
     Route: 048
     Dates: start: 20130503
  4. PLAQUENIL [Concomitant]
     Route: 065
  5. ACTONEL [Concomitant]
  6. ELTROXIN [Concomitant]
  7. TYLENOL [Concomitant]
     Route: 065
  8. METHYLPREDNISOLONE [Concomitant]
     Indication: PREMEDICATION
     Route: 042
     Dates: start: 20130503
  9. METHOTREXATE [Concomitant]
     Route: 065
  10. FOLIC ACID [Concomitant]
  11. PREDNISONE [Concomitant]
  12. RABEPRAZOLE [Concomitant]

REACTIONS (3)
  - Red blood cell count decreased [Unknown]
  - Rheumatoid arthritis [Not Recovered/Not Resolved]
  - Hypotension [Unknown]
